FAERS Safety Report 13141337 (Version 1)
Quarter: 2017Q1

REPORT INFORMATION
  Report Type: Spontaneous
  Country: US (occurrence: US)
  Receive Date: 20170124
  Receipt Date: 20170124
  Transmission Date: 20170428
  Serious: Yes (Life-Threatening)
  Sender: FDA-Public Use
  Company Number: None

PATIENT
  Age: 17 Year
  Sex: Male
  Weight: 68.04 kg

DRUGS (3)
  1. CHRONULAC [Suspect]
     Active Substance: LACTULOSE
     Indication: PRODUCT USED FOR UNKNOWN INDICATION
     Dosage: FREQUENCY - I THINK 1 TIME A DAY, BUT ON 1-14-16 HAD 2 DOSES.
     Route: 048
     Dates: start: 20160114, end: 20160115
  2. FLUOXETINE HCL [Concomitant]
     Active Substance: FLUOXETINE HYDROCHLORIDE
  3. LITHIUM CARBONATE. [Concomitant]
     Active Substance: LITHIUM CARBONATE

REACTIONS (8)
  - Abnormal behaviour [None]
  - Constipation [None]
  - Aspartate aminotransferase increased [None]
  - Diarrhoea [None]
  - Memory impairment [None]
  - Hallucination, auditory [None]
  - Urine output increased [None]
  - Psychotic disorder [None]

NARRATIVE: CASE EVENT DATE: 20160114
